FAERS Safety Report 10163600 (Version 2)
Quarter: 2014Q2

REPORT INFORMATION
  Report Type: Spontaneous
  Country: US (occurrence: US)
  Receive Date: 20140509
  Receipt Date: 20140509
  Transmission Date: 20141212
  Serious: Yes (Disabling, Other)
  Sender: FDA-Public Use
  Company Number: US-009507513-1109USA02461

PATIENT
  Sex: Male
  Weight: 83.7 kg

DRUGS (3)
  1. PROPECIA [Suspect]
     Indication: ALOPECIA
     Dosage: 1 MG, QD
     Route: 048
     Dates: start: 1998
  2. PROPECIA [Suspect]
     Indication: ANDROGENETIC ALOPECIA
  3. FINASTERIDE [Suspect]
     Indication: ALOPECIA
     Dosage: 5 MG, UNK
     Route: 048

REACTIONS (40)
  - Visual field defect [Unknown]
  - Emotional distress [Unknown]
  - Anxiety [Unknown]
  - Sexual dysfunction [Unknown]
  - Muscular weakness [Unknown]
  - Insomnia [Unknown]
  - Anger [Unknown]
  - Blood cholesterol increased [Unknown]
  - Intentional product misuse [Unknown]
  - Stress [Unknown]
  - Hypoaesthesia [Recovered/Resolved]
  - Proctalgia [Unknown]
  - Rhinitis allergic [Unknown]
  - Cerumen impaction [Unknown]
  - Blood glucose increased [Unknown]
  - Liver function test abnormal [Unknown]
  - Dyspepsia [Unknown]
  - Benign prostatic hyperplasia [Unknown]
  - Herpes zoster [Unknown]
  - Tachycardia [Unknown]
  - Palpitations [Recovered/Resolved]
  - Chest pain [Recovered/Resolved]
  - Diplopia [Not Recovered/Not Resolved]
  - Vision blurred [Not Recovered/Not Resolved]
  - Arthropod bite [Unknown]
  - Dysuria [Unknown]
  - Dyspnoea exertional [Unknown]
  - Diverticulum [Unknown]
  - Angioedema [Unknown]
  - Dermal cyst [Unknown]
  - Hand fracture [Unknown]
  - Clavicle fracture [Unknown]
  - Palpitations [Unknown]
  - Actinic keratosis [Unknown]
  - Seborrhoeic keratosis [Unknown]
  - Lentigo [Unknown]
  - Depression [Unknown]
  - Depression [Unknown]
  - Testicular pain [Unknown]
  - Drug ineffective [Unknown]
